FAERS Safety Report 9426849 (Version 1)
Quarter: 2013Q3

REPORT INFORMATION
  Report Type: Spontaneous
  Country: US (occurrence: US)
  Receive Date: 20130730
  Receipt Date: 20130730
  Transmission Date: 20140515
  Serious: Yes (Other)
  Sender: FDA-Public Use
  Company Number: US-SANOFI-AVENTIS-2013SA047449

PATIENT
  Sex: Female

DRUGS (2)
  1. AMBIEN [Suspect]
     Indication: SLEEP DISORDER
     Dates: start: 201108
  2. REBIF [Suspect]
     Indication: MULTIPLE SCLEROSIS
     Dates: start: 20110329

REACTIONS (10)
  - Suicidal ideation [Unknown]
  - Depression [Unknown]
  - Feeling abnormal [Unknown]
  - Sensation of pressure [Unknown]
  - Pain in extremity [Unknown]
  - Insomnia [Unknown]
  - Abnormal dreams [Unknown]
  - Muscle spasms [Unknown]
  - Headache [Unknown]
  - Pain [Unknown]
